FAERS Safety Report 5264857-7 (Version None)
Quarter: 2007Q1

REPORT INFORMATION
  Report Type: 
  Country: None (occurrence: None)
  Receive Date: 20070314
  Receipt Date: 20070302
  Transmission Date: 20070707
  Serious: Yes (Hospitalization)
  Sender: FDA-Public Use
  Company Number: 2007GB00455

PATIENT
  Age: 57 Year
  Sex: Female

DRUGS (2)
  1. LIDOCAINE [Suspect]
     Route: 014
     Dates: start: 20061219
  2. KENALOG [Suspect]
     Route: 014
     Dates: start: 20061219

REACTIONS (2)
  - ARTHRITIS INFECTIVE [None]
  - PERIARTHRITIS [None]
